FAERS Safety Report 15490451 (Version 3)
Quarter: 2018Q4

REPORT INFORMATION
  Report Type: Report from Study
  Country: US (occurrence: US)
  Receive Date: 20181011
  Receipt Date: 20181031
  Transmission Date: 20190205
  Serious: Yes (Hospitalization, Other)
  Sender: FDA-Public Use
  Company Number: US-ALEXION PHARMACEUTICALS INC.-A201813358

PATIENT
  Sex: Male

DRUGS (1)
  1. SOLIRIS [Suspect]
     Active Substance: ECULIZUMAB
     Indication: ATYPICAL HAEMOLYTIC URAEMIC SYNDROME
     Route: 065

REACTIONS (10)
  - Intracardiac thrombus [Not Recovered/Not Resolved]
  - Cardiac failure congestive [Unknown]
  - Enterococcal infection [Unknown]
  - Heart rate increased [Unknown]
  - Hepatic infection bacterial [Unknown]
  - Oxygen saturation decreased [Unknown]
  - Intestinal perforation [Unknown]
  - Pancreatitis [Unknown]
  - Device leakage [Unknown]
  - Stress cardiomyopathy [Unknown]
